FAERS Safety Report 15863358 (Version 2)
Quarter: 2019Q1

REPORT INFORMATION
  Report Type: Spontaneous
  Country: IT (occurrence: IT)
  Receive Date: 20190124
  Receipt Date: 20190206
  Transmission Date: 20190417
  Serious: Yes (Hospitalization)
  Sender: FDA-Public Use
  Company Number: IT-MYLANLABS-2012S1020985

PATIENT
  Age: 66 Year
  Sex: Male
  Weight: 60 kg

DRUGS (2)
  1. PARACODINA                         /00063002/ [Suspect]
     Active Substance: ASPIRIN\CAFFEINE\DIHYDROCODEINE BITARTRATE
     Indication: COUGH
     Dosage: 1 DOSAGE FORM, QD
     Route: 048
     Dates: start: 20120928, end: 20120930
  2. LEVOFLOXACIN. [Suspect]
     Active Substance: LEVOFLOXACIN
     Indication: BRONCHITIS
     Dosage: 1 DOSAGE FORM, QD
     Route: 048
     Dates: start: 20120928, end: 20120930

REACTIONS (5)
  - Urticaria [Recovering/Resolving]
  - Eosinophilia [Recovering/Resolving]
  - Bronchospasm [Unknown]
  - Blood immunoglobulin E increased [Recovering/Resolving]
  - Bronchitis [Recovering/Resolving]

NARRATIVE: CASE EVENT DATE: 20120930
